FAERS Safety Report 23951323 (Version 2)
Quarter: 2024Q3

REPORT INFORMATION
  Report Type: Spontaneous
  Country: AU (occurrence: AU)
  Receive Date: 20240607
  Receipt Date: 20240805
  Transmission Date: 20241016
  Serious: Yes (Hospitalization, Other)
  Sender: PFIZER
  Company Number: AU-PFIZER INC-202400187723

PATIENT
  Sex: Female

DRUGS (1)
  1. XELJANZ [Suspect]
     Active Substance: TOFACITINIB CITRATE
     Dosage: UNK

REACTIONS (18)
  - Pulmonary thrombosis [Unknown]
  - Rheumatoid arthritis [Unknown]
  - Diabetes mellitus [Unknown]
  - Gastric cancer [Unknown]
  - Hip surgery [Unknown]
  - Walking disability [Unknown]
  - White blood cell count decreased [Unknown]
  - Pain [Unknown]
  - Arthritis [Unknown]
  - Jaw disorder [Unknown]
  - Loss of personal independence in daily activities [Unknown]
  - Limb asymmetry [Unknown]
  - Muscle atrophy [Unknown]
  - Fatigue [Unknown]
  - Impaired quality of life [Unknown]
  - Inflammation [Unknown]
  - Gait disturbance [Unknown]
  - Product dose omission issue [Unknown]

NARRATIVE: CASE EVENT DATE: 20210101
